FAERS Safety Report 24291903 (Version 2)
Quarter: 2024Q3

REPORT INFORMATION
  Report Type: Spontaneous
  Country: US (occurrence: US)
  Receive Date: 20240906
  Receipt Date: 20240925
  Transmission Date: 20241017
  Serious: No
  Sender: CSL BEHRING
  Company Number: US-BEH-2024178229

PATIENT
  Age: 32 Year
  Sex: Female
  Weight: 60 kg

DRUGS (1)
  1. HIZENTRA [Suspect]
     Active Substance: HUMAN IMMUNOGLOBULIN G
     Dosage: UNK UNK (STRENGTH: 10G), QW
     Route: 058
     Dates: start: 20240826, end: 20240826

REACTIONS (7)
  - Rash [Unknown]
  - Pruritus [Unknown]
  - Contusion [Unknown]
  - Infusion site swelling [Unknown]
  - Injection site rash [Unknown]
  - Infusion site pruritus [Unknown]
  - Ligament sprain [Unknown]

NARRATIVE: CASE EVENT DATE: 20240829
